FAERS Safety Report 7405131 (Version 2)
Quarter: 2020Q2

REPORT INFORMATION
  Report Type: Spontaneous
  Country: PT (occurrence: PT)
  Receive Date: 20100601
  Receipt Date: 20200424
  Transmission Date: 20200714
  Serious: Yes (Other)
  Sender: FDA-Public Use
  Company Number: PT-JNJFOC-20100509789

PATIENT
  Age: 3 Year
  Sex: Female

DRUGS (3)
  1. REMICADE [Suspect]
     Active Substance: INFLIXIMAB
     Indication: PUSTULAR PSORIASIS
     Dosage: 5 MG/KG AT WEEKS 0, 2, AND 6
     Route: 042
  2. REMICADE [Suspect]
     Active Substance: INFLIXIMAB
     Dosage: 5 MG/KG AT WEEKS 0, 2, AND 6
     Route: 042
  3. METHOTREXATE. [Suspect]
     Active Substance: METHOTREXATE
     Indication: PUSTULAR PSORIASIS

REACTIONS (7)
  - Pityriasis [Recovering/Resolving]
  - Pustular psoriasis [Recovering/Resolving]
  - Nail dystrophy [Recovering/Resolving]
  - Hepatotoxicity [Recovered/Resolved]
  - Neutralising antibodies [Unknown]
  - Upper respiratory tract infection [Unknown]
  - Pharyngitis [Unknown]
